FAERS Safety Report 4855851-6 (Version None)
Quarter: 2005Q4

REPORT INFORMATION
  Report Type: 
  Country: None (occurrence: None)
  Receive Date: 20051216
  Receipt Date: 20051130
  Transmission Date: 20060501
  Serious: Yes (Other)
  Sender: FDA-Public Use
  Company Number: GB-GLAXOSMITHKLINE-B0402418A

PATIENT
  Age: 45 Year
  Sex: Female

DRUGS (2)
  1. NIQUITIN CQ 21MG [Suspect]
     Dosage: 21MG PER DAY
     Route: 062
     Dates: start: 20051121, end: 20051126
  2. KEPPRA [Concomitant]

REACTIONS (4)
  - DYSPEPSIA [None]
  - LOSS OF CONSCIOUSNESS [None]
  - NAUSEA [None]
  - PETIT MAL EPILEPSY [None]
